FAERS Safety Report 18511288 (Version 1)
Quarter: 2020Q4

REPORT INFORMATION
  Report Type: Spontaneous
  Country: US (occurrence: US)
  Receive Date: 20201117
  Receipt Date: 20201117
  Transmission Date: 20210114
  Serious: Yes (Death, Life-Threatening, Hospitalization)
  Sender: FDA-Public Use
  Company Number: None

PATIENT
  Age: 65 Year
  Sex: Male
  Weight: 88.9 kg

DRUGS (5)
  1. CELECOXIB 200 MG TWICE DAILY [Concomitant]
  2. IBUPROFEN 800 MG THREE TIMES DAILY AS NEEDED [Concomitant]
  3. FISH OIL [Concomitant]
     Active Substance: FISH OIL
  4. GARLIC. [Concomitant]
     Active Substance: GARLIC
  5. WARFARIN [Suspect]
     Active Substance: WARFARIN
     Indication: ATRIAL FIBRILLATION
     Route: 048
     Dates: start: 20201105, end: 20201113

REACTIONS (1)
  - Cerebral haemorrhage [None]

NARRATIVE: CASE EVENT DATE: 20201113
